FAERS Safety Report 10283261 (Version 1)
Quarter: 2014Q3

REPORT INFORMATION
  Report Type: Spontaneous
  Country: US (occurrence: None)
  Receive Date: 20140703
  Receipt Date: 20140703
  Transmission Date: 20150326
  Serious: Yes (Hospitalization)
  Sender: FDA-Public Use
  Company Number: UNT-2014-001814

PATIENT
  Sex: Female

DRUGS (1)
  1. REMODULIN [Suspect]
     Active Substance: TREPROSTINIL
     Indication: PULMONARY ARTERIAL HYPERTENSION
     Dosage: Q48H
     Route: 058
     Dates: start: 20121015

REACTIONS (5)
  - Infusion site cellulitis [None]
  - Infusion site infection [None]
  - Infusion site erythema [None]
  - Infusion site swelling [None]
  - Infusion site pain [None]

NARRATIVE: CASE EVENT DATE: 20140511
